FAERS Safety Report 4666636-8 (Version None)
Quarter: 2005Q2

REPORT INFORMATION
  Report Type: 
  Country: None (occurrence: None)
  Receive Date: 20050519
  Receipt Date: 20040107
  Transmission Date: 20051028
  Serious: Yes (Disabling)
  Sender: FDA-Public Use
  Company Number: BE-ABBOTT-04P-013-0246512-00

PATIENT
  Sex: Male
  Weight: 113.2 kg

DRUGS (7)
  1. SIBUTRAMINE [Suspect]
     Indication: OBESITY
     Route: 048
     Dates: start: 20030917, end: 20040107
  2. GLUCOPHAGE [Concomitant]
     Indication: DIABETES MELLITUS
     Dates: start: 19930101
  3. ZOCOR [Concomitant]
     Indication: HYPERLIPIDAEMIA
     Dates: start: 20021001
  4. IRBESARTAN [Concomitant]
     Indication: HYPERTENSION
     Dates: start: 19981104
  5. METOPROLOL SUCCINATE [Concomitant]
     Indication: MYOCARDIAL ISCHAEMIA
     Dates: start: 19990101
  6. ACETYL SALICYLIC ACID USP BAT [Concomitant]
     Indication: MYOCARDIAL ISCHAEMIA
     Dates: start: 20020101
  7. ISOPHANE INSULIN [Concomitant]
     Indication: DIABETES MELLITUS
     Dates: start: 19971002

REACTIONS (1)
  - DIPLOPIA [None]
